FAERS Safety Report 24900855 (Version 1)
Quarter: 2025Q1

REPORT INFORMATION
  Report Type: Spontaneous
  Country: GB (occurrence: GB)
  Receive Date: 20250129
  Receipt Date: 20250129
  Transmission Date: 20250409
  Serious: Yes (Hospitalization)
  Sender: DOUGLAS PHARMACEUTICALS
  Company Number: GB-TASMAN PHARMA, INC.-2025TSM00007

PATIENT
  Age: 6 Decade
  Sex: Female

DRUGS (11)
  1. CLOZAPINE [Suspect]
     Active Substance: CLOZAPINE
     Indication: Schizophrenia
     Dosage: 50 MG, 1X/DAY IN THE MORNING; ON ADMISSION
  2. CLOZAPINE [Suspect]
     Active Substance: CLOZAPINE
     Dosage: 500 MG, 1X/DAY IN THE EVENING;  ON ADMISSION
  3. CLOZAPINE [Suspect]
     Active Substance: CLOZAPINE
     Dosage: 150 MG, 1X/DAY IN THE MORNING; INITIAL DETERIORATION
  4. CLOZAPINE [Suspect]
     Active Substance: CLOZAPINE
     Dosage: 200 MG, 1X/DAY IN THE EVENING; INITIAL DETERIORATION
  5. CLOZAPINE [Suspect]
     Active Substance: CLOZAPINE
     Dosage: 100 MG, 1X/DAY IN THE MORNING; WEANING COMMENCED
  6. CLOZAPINE [Suspect]
     Active Substance: CLOZAPINE
     Dosage: 100 MG, 1X/DAY IN THE EVENING; WEANING COMMENCED
  7. CLOZAPINE [Suspect]
     Active Substance: CLOZAPINE
     Dosage: 50 MG, 1X/DAY IN THE MORNING; END OF WEAN (AFTER 5 DAYS)
  8. CLOZAPINE [Suspect]
     Active Substance: CLOZAPINE
     Dosage: 200 MG, 1X/DAY IN THE EVENING; END OF WEAN (AFTER 5 DAYS)
  9. ZOLPIDEM TARTRATE [Concomitant]
     Active Substance: ZOLPIDEM TARTRATE
  10. ZOLPIDEM TARTRATE [Concomitant]
     Active Substance: ZOLPIDEM TARTRATE
     Dosage: 200 MG; WEANING COMMENCED (REDUCED BY 50 MG  EVERY 24 HOURS UNTIL AT 50% OF TOTAL  24 HOURS DOSE)
  11. MIRTAZAPINE [Concomitant]
     Active Substance: MIRTAZAPINE

REACTIONS (2)
  - Skin necrosis [Unknown]
  - Toxicity to various agents [Recovered/Resolved]
